FAERS Safety Report 17064041 (Version 1)
Quarter: 2019Q4

REPORT INFORMATION
  Report Type: Spontaneous
  Country: US (occurrence: US)
  Receive Date: 20191023
  Receipt Date: 20191023
  Transmission Date: 20200122
  Serious: Yes (Hospitalization)
  Sender: FDA-Public Use
  Company Number: None

PATIENT
  Age: 62 Year
  Sex: Female

DRUGS (8)
  1. PATOPRAZOLE [Concomitant]
  2. CLARITIN [Concomitant]
     Active Substance: LORATADINE
  3. TADALAFIL 20MG [Suspect]
     Active Substance: TADALAFIL
     Indication: PULMONARY ARTERIAL HYPERTENSION
     Route: 048
     Dates: start: 20190426
  4. GLUCO/CHONDR [Concomitant]
  5. POT CL [Concomitant]
  6. URISODIOL [Concomitant]
  7. GENERALC [Concomitant]
  8. AMBRISENTAN 10MG [Suspect]
     Active Substance: AMBRISENTAN
     Indication: PULMONARY ARTERIAL HYPERTENSION
     Route: 048
     Dates: start: 20190831

REACTIONS (3)
  - Chest pain [None]
  - Heart rate irregular [None]
  - Back pain [None]

NARRATIVE: CASE EVENT DATE: 20191004
